FAERS Safety Report 6496420-4 (Version None)
Quarter: 2009Q4

REPORT INFORMATION
  Report Type: 
  Country: None (occurrence: None)
  Receive Date: 20091214
  Receipt Date: 20091130
  Transmission Date: 20100525
  Serious: Yes (Hospitalization, Other)
  Sender: FDA-Public Use
  Company Number: PL-SANOFI-AVENTIS-2009SA005517

PATIENT
  Age: 28 Year
  Sex: Female

DRUGS (10)
  1. OXALIPLATIN [Suspect]
     Indication: RECTAL CANCER METASTATIC
     Route: 041
  2. OXALIPLATIN [Suspect]
     Route: 041
  3. CAPECITABINE [Suspect]
     Route: 065
  4. CAPECITABINE [Suspect]
     Route: 065
  5. FLUOROURACIL [Suspect]
     Indication: RECTAL CANCER METASTATIC
     Route: 042
  6. FLUOROURACIL [Suspect]
     Route: 042
  7. LEUCOVORIN CALCIUM [Suspect]
     Indication: RECTAL CANCER METASTATIC
     Route: 065
  8. LEUCOVORIN CALCIUM [Suspect]
     Route: 065
  9. ONDANSETRON [Concomitant]
  10. DEXAMETHASONE TAB [Concomitant]

REACTIONS (2)
  - CARDIOTOXICITY [None]
  - MALIGNANT NEOPLASM PROGRESSION [None]
